FAERS Safety Report 16126085 (Version 4)
Quarter: 2019Q4

REPORT INFORMATION
  Report Type: Report from Study
  Country: US (occurrence: US)
  Receive Date: 20190328
  Receipt Date: 20191004
  Transmission Date: 20200122
  Serious: Yes (Hospitalization)
  Sender: FDA-Public Use
  Company Number: US-ROCHE-2290815

PATIENT
  Sex: Female

DRUGS (31)
  1. MORPHINE SULFATE. [Concomitant]
     Active Substance: MORPHINE SULFATE
  2. BIOTIN [Concomitant]
     Active Substance: BIOTIN
  3. OCUVITE ADULT 50+ [ASCORBIC ACID;COPPER GLUCONATE;FISH OIL;TOCOPHEROL; [Concomitant]
  4. DICLOFENAC SODIUM. [Concomitant]
     Active Substance: DICLOFENAC SODIUM
  5. LIVALO [Concomitant]
     Active Substance: PITAVASTATIN CALCIUM
     Route: 065
  6. PREDNISONE. [Concomitant]
     Active Substance: PREDNISONE
  7. ESTRACE [Concomitant]
     Active Substance: ESTRADIOL
  8. FLUCONAZOLE. [Concomitant]
     Active Substance: FLUCONAZOLE
  9. PROLIA [Concomitant]
     Active Substance: DENOSUMAB
  10. ZANTAC [Concomitant]
     Active Substance: RANITIDINE HYDROCHLORIDE
     Route: 065
  11. EPINEPHRINE. [Concomitant]
     Active Substance: EPINEPHRINE
  12. FLONASE ALLERGY RELIEF [Concomitant]
     Active Substance: FLUTICASONE PROPIONATE
  13. MULTAQ [Concomitant]
     Active Substance: DRONEDARONE
  14. POTASSIUM CHLORIDE. [Concomitant]
     Active Substance: POTASSIUM CHLORIDE
  15. XOLAIR [Interacting]
     Active Substance: OMALIZUMAB
     Route: 058
     Dates: start: 201603
  16. MUCINEX [Concomitant]
     Active Substance: GUAIFENESIN
     Route: 065
  17. COENZYME Q10 [Concomitant]
     Active Substance: UBIDECARENONE
     Route: 065
  18. ALBUTEROL SULFATE. [Concomitant]
     Active Substance: ALBUTEROL SULFATE
  19. BUDESONIDE. [Concomitant]
     Active Substance: BUDESONIDE
  20. DIFLUCAN [Concomitant]
     Active Substance: FLUCONAZOLE
     Route: 065
  21. MUCINEX [Concomitant]
     Active Substance: GUAIFENESIN
     Route: 065
  22. DOXYCYCLINE HYCLATE. [Concomitant]
     Active Substance: DOXYCYCLINE HYCLATE
     Route: 065
  23. IPRATROPIUM BROMIDE. [Concomitant]
     Active Substance: IPRATROPIUM BROMIDE
  24. AMOXICILLIN. [Concomitant]
     Active Substance: AMOXICILLIN
     Route: 065
  25. EPIPEN [Concomitant]
     Active Substance: EPINEPHRINE
  26. XOLAIR [Suspect]
     Active Substance: OMALIZUMAB
     Indication: HYPOGAMMAGLOBULINAEMIA
     Dosage: 150 MG VIAL
     Route: 058
     Dates: start: 201702
  27. DIFLUCAN [Concomitant]
     Active Substance: FLUCONAZOLE
     Route: 065
  28. CLARITIN [Concomitant]
     Active Substance: LORATADINE
  29. FUROSEMIDE. [Concomitant]
     Active Substance: FUROSEMIDE
  30. NYSTATIN. [Concomitant]
     Active Substance: NYSTATIN
  31. DUPIXENT [Concomitant]
     Active Substance: DUPILUMAB

REACTIONS (12)
  - Upper respiratory tract infection [Unknown]
  - Urinary tract infection [Not Recovered/Not Resolved]
  - Drug interaction [Recovered/Resolved]
  - Pain [Unknown]
  - Depression [Unknown]
  - Gastroenteritis viral [Not Recovered/Not Resolved]
  - Atrial fibrillation [Not Recovered/Not Resolved]
  - Diarrhoea [Recovered/Resolved]
  - Off label use [Unknown]
  - Gastroenteritis viral [Recovered/Resolved]
  - Intentional product use issue [Unknown]
  - Agitation [Unknown]
